FAERS Safety Report 4474880-8 (Version None)
Quarter: 2004Q4

REPORT INFORMATION
  Report Type: 
  Country: None (occurrence: None)
  Receive Date: 20041012
  Receipt Date: 20041004
  Transmission Date: 20050328
  Serious: Yes (Other)
  Sender: FDA-Public Use
  Company Number: GB-2004-031375

PATIENT
  Age: 49 Year
  Sex: Female

DRUGS (2)
  1. ULTRAVIST 300 [Suspect]
     Indication: COMPUTERISED TOMOGRAM
     Dosage: 100 ML, 1 DOSE, INTRAVENOUS
     Route: 042
     Dates: start: 20040816, end: 20040816
  2. PREDNISOLONE [Concomitant]

REACTIONS (5)
  - LACRIMATION INCREASED [None]
  - RASH [None]
  - SNEEZING [None]
  - SWELLING FACE [None]
  - URTICARIA [None]
